FAERS Safety Report 18421872 (Version 2)
Quarter: 2025Q4

REPORT INFORMATION
  Report Type: Report from Study
  Country: BR (occurrence: BR)
  Receive Date: 20201023
  Receipt Date: 20251003
  Transmission Date: 20260118
  Serious: Yes (Hospitalization, Other)
  Sender: JOHNSON AND JOHNSON
  Company Number: BR-JNJFOC-20201020141

PATIENT
  Age: 12 Year
  Sex: Female
  Weight: 68 kg

DRUGS (3)
  1. INFLIXIMAB [Suspect]
     Active Substance: INFLIXIMAB
     Indication: Colitis ulcerative
     Dosage: 3 VIALS EVERY 4 WEEKS
     Route: 041
     Dates: start: 202005, end: 202502
  2. AZATHIOPRINE [Suspect]
     Active Substance: AZATHIOPRINE
  3. PREDNISONE [Concomitant]
     Active Substance: PREDNISONE
     Indication: Product used for unknown indication

REACTIONS (14)
  - Anal haemorrhage [Recovered/Resolved]
  - Colitis ulcerative [Recovered/Resolved]
  - Suicidal behaviour [Not Recovered/Not Resolved]
  - Furuncle [Recovering/Resolving]
  - Psoriasis [Not Recovered/Not Resolved]
  - Dysmenorrhoea [Not Recovered/Not Resolved]
  - Weight increased [Unknown]
  - Antisocial behaviour [Not Recovered/Not Resolved]
  - Stress [Not Recovered/Not Resolved]
  - Inferiority complex [Not Recovered/Not Resolved]
  - Overdose [Recovered/Resolved]
  - Off label use [Unknown]
  - Product dose omission issue [Unknown]
  - Therapy cessation [Unknown]

NARRATIVE: CASE EVENT DATE: 20201008
